FAERS Safety Report 4530383-3 (Version None)
Quarter: 2004Q4

REPORT INFORMATION
  Report Type: 
  Country: None (occurrence: None)
  Receive Date: 20041215
  Receipt Date: 20041202
  Transmission Date: 20050328
  Serious: No
  Sender: FDA-Public Use
  Company Number: 02100-JPN-04-0281

PATIENT
  Age: 66 Year
  Sex: Male

DRUGS (5)
  1. CILOSTAZOL [Suspect]
     Dosage: 200 MG
     Route: 048
     Dates: start: 20040928, end: 20041006
  2. DONEPEZIL HCL [Suspect]
     Indication: DEMENTIA ALZHEIMER'S TYPE
     Dosage: 3 MG
     Route: 048
     Dates: start: 20040928, end: 20041006
  3. CANDESARTAN CILEXETIL [Concomitant]
  4. IMIDAPRIL HYDROCHLORIDE [Concomitant]
  5. MANIDIPINE HYDROCHLORIDE [Concomitant]

REACTIONS (3)
  - ASTHENIA [None]
  - COORDINATION ABNORMAL [None]
  - GAIT DISTURBANCE [None]
